FAERS Safety Report 7582415-6 (Version None)
Quarter: 2011Q2

REPORT INFORMATION
  Report Type: 
  Country: None (occurrence: None)
  Receive Date: 20110623
  Receipt Date: 20110608
  Transmission Date: 20111010
  Serious: Yes (Hospitalization)
  Sender: FDA-Public Use
  Company Number: 2011MA006936

PATIENT
  Age: 55 Year
  Sex: Male

DRUGS (2)
  1. DICLOFENAC SODIUM [Suspect]
     Indication: ARTHRALGIA
  2. COROSOLIC ACID [Concomitant]

REACTIONS (8)
  - ABDOMINAL PAIN [None]
  - METABOLIC ACIDOSIS [None]
  - HAEMODIALYSIS [None]
  - ABDOMINAL TENDERNESS [None]
  - HYPOPERFUSION [None]
  - RENAL FAILURE ACUTE [None]
  - HYPOXIA [None]
  - DECREASED APPETITE [None]
